FAERS Safety Report 5603801-7 (Version None)
Quarter: 2008Q1

REPORT INFORMATION
  Report Type: 
  Country: None (occurrence: None)
  Receive Date: 20080122
  Receipt Date: 20080111
  Transmission Date: 20080703
  Serious: Yes (Hospitalization)
  Sender: FDA-Public Use
  Company Number: 2007US003095

PATIENT
  Age: 40 Year
  Sex: Female
  Weight: 68 kg

DRUGS (2)
  1. PROGRAF [Suspect]
     Indication: RENAL TRANSPLANT
     Dosage: 7 MG, BID, ORAL
     Route: 048
     Dates: start: 20051115, end: 20071203
  2. THYMOGLOBULIN [Concomitant]

REACTIONS (10)
  - BRAIN DEATH [None]
  - CARDIAC ARREST [None]
  - CARDIOMEGALY [None]
  - CONGENITAL CYSTIC KIDNEY DISEASE [None]
  - OVARIAN CYST [None]
  - POLYCYSTIC LIVER DISEASE [None]
  - POST PROCEDURAL COMPLICATION [None]
  - SUBARACHNOID HAEMORRHAGE [None]
  - UTERINE LEIOMYOMA [None]
  - VENTRICULAR HYPERTROPHY [None]
